FAERS Safety Report 19495794 (Version 2)
Quarter: 2021Q3

REPORT INFORMATION
  Report Type: Spontaneous
  Country: JP (occurrence: JP)
  Receive Date: 20210706
  Receipt Date: 20210816
  Transmission Date: 20211014
  Serious: Yes (Hospitalization, Other)
  Sender: FDA-Public Use
  Company Number: NVSJ2021JP004396

PATIENT
  Age: 10 Year
  Sex: Female

DRUGS (1)
  1. ILARIS [Suspect]
     Active Substance: CANAKINUMAB
     Indication: STILL^S DISEASE
     Dosage: 150 MG
     Route: 058
     Dates: start: 20191118

REACTIONS (7)
  - Disease recurrence [Recovering/Resolving]
  - Pyrexia [Unknown]
  - Physical deconditioning [Unknown]
  - Still^s disease [Recovering/Resolving]
  - Lymphadenopathy [Unknown]
  - Rash [Recovering/Resolving]
  - Haemophagocytic lymphohistiocytosis [Recovered/Resolved]

NARRATIVE: CASE EVENT DATE: 20210619
